FAERS Safety Report 10264608 (Version 1)
Quarter: 2014Q2

REPORT INFORMATION
  Report Type: Spontaneous
  Country: SE (occurrence: SE)
  Receive Date: 20140627
  Receipt Date: 20140627
  Transmission Date: 20141212
  Serious: Yes (Other)
  Sender: FDA-Public Use
  Company Number: PHHY2014SE079098

PATIENT
  Sex: Male

DRUGS (1)
  1. SANDIMMUN NEORAL [Suspect]
     Indication: COLITIS ULCERATIVE
     Dosage: UNK

REACTIONS (3)
  - Asthma [Unknown]
  - Pneumonia [Unknown]
  - Lung infiltration [Unknown]
